FAERS Safety Report 5537115-0 (Version None)
Quarter: 2007Q4

REPORT INFORMATION
  Report Type: 
  Country: None (occurrence: None)
  Receive Date: 20071205
  Receipt Date: 20071205
  Transmission Date: 20080405
  Serious: Yes (Other)
  Sender: FDA-Public Use
  Company Number: None

PATIENT
  Age: 44 Year
  Sex: Female
  Weight: 72.5755 kg

DRUGS (1)
  1. CYMBALTA [Suspect]
     Indication: NEURALGIA
     Dates: start: 20070901, end: 20071205

REACTIONS (5)
  - FACE INJURY [None]
  - INSOMNIA [None]
  - MANIA [None]
  - SYNCOPE [None]
  - THERMAL BURN [None]
